FAERS Safety Report 4660482-7 (Version None)
Quarter: 2005Q2

REPORT INFORMATION
  Report Type: 
  Country: None (occurrence: None)
  Receive Date: 20050512
  Receipt Date: 20050428
  Transmission Date: 20051028
  Serious: Yes (Congenital Anomaly, Other)
  Sender: FDA-Public Use
  Company Number: GB-JNJFOC-20050500027

PATIENT
  Sex: Male
  Weight: 2.44 kg

DRUGS (2)
  1. HALOPERIDOL [Suspect]
     Indication: MANIA
     Dosage: TAKEN DURING THIRD TRIMESTER OF PREGNANCY
  2. RISPERIDONE [Suspect]
     Indication: MANIA
     Dosage: TAKEN DURING THIRD TRIMESTER OF PREGNANCY
     Route: 064

REACTIONS (3)
  - CONGENITAL ANOMALY [None]
  - DRUG EXPOSURE DURING PREGNANCY [None]
  - GASTROSCHISIS [None]
